FAERS Safety Report 24132104 (Version 2)
Quarter: 2024Q3

REPORT INFORMATION
  Report Type: Spontaneous
  Country: CA (occurrence: CA)
  Receive Date: 20240724
  Receipt Date: 20240730
  Transmission Date: 20241017
  Serious: Yes (Other)
  Sender: ANI
  Company Number: CA-ANIPHARMA-2024-CA-003333

PATIENT
  Age: 76 Year
  Sex: Female
  Weight: 73 kg

DRUGS (5)
  1. CANDESARTAN [Suspect]
     Active Substance: CANDESARTAN
     Indication: Migraine prophylaxis
     Dosage: .5 MG DAILY
  2. PROPRANOLOL [Suspect]
     Active Substance: PROPRANOLOL HYDROCHLORIDE
  3. RIZATRIPTAN [Suspect]
     Active Substance: RIZATRIPTAN
  4. SERTRALINE [Suspect]
     Active Substance: SERTRALINE HYDROCHLORIDE
  5. ZOPICLONE [Suspect]
     Active Substance: ZOPICLONE

REACTIONS (3)
  - Hallucination, visual [Unknown]
  - Headache [Recovered/Resolved]
  - Product use in unapproved indication [Unknown]
